FAERS Safety Report 22649949 (Version 3)
Quarter: 2023Q4

REPORT INFORMATION
  Report Type: Other
  Country: US (occurrence: None)
  Receive Date: 20230628
  Receipt Date: 20231210
  Transmission Date: 20240110
  Serious: Yes (Other)
  Sender: FDA-Public Use
  Company Number: US-ROCHE-3377469

PATIENT
  Age: 51 Year
  Sex: Female

DRUGS (2)
  1. OCRELIZUMAB [Suspect]
     Active Substance: OCRELIZUMAB
     Indication: Multiple sclerosis
     Dosage: GIVEN 16 AND 27 DAYS PRIOR
     Route: 042
  2. PREDNISONE [Concomitant]
     Active Substance: PREDNISONE
     Dosage: FOR 1 WEEK

REACTIONS (1)
  - Drug-induced liver injury [Unknown]
